FAERS Safety Report 7468274-0 (Version None)
Quarter: 2011Q2

REPORT INFORMATION
  Report Type: 
  Country: None (occurrence: None)
  Receive Date: 20110509
  Receipt Date: 20110429
  Transmission Date: 20111010
  Serious: Yes (Hospitalization, Other)
  Sender: FDA-Public Use
  Company Number: US-ASTRAZENECA-2010SE61055

PATIENT
  Age: 62 Year
  Sex: Female
  Weight: 45.4 kg

DRUGS (8)
  1. SYMBICORT [Suspect]
     Indication: ASTHMA
     Dosage: 160.4.5  MCG BID
     Route: 055
     Dates: start: 20080101
  2. NEXIUM [Suspect]
     Indication: ABDOMINAL DISCOMFORT
     Route: 048
     Dates: start: 20101101
  3. ASPIRIN [Concomitant]
     Route: 048
  4. M.V.I. [Concomitant]
     Dosage: DAILY
     Route: 048
  5. SYMBICORT [Suspect]
     Indication: CHRONIC OBSTRUCTIVE PULMONARY DISEASE
     Dosage: 160.4.5  MCG BID
     Route: 055
     Dates: start: 20080101
  6. ATENOLOL [Concomitant]
     Indication: HYPERTENSION
     Route: 048
     Dates: start: 20060101
  7. AMLODIPINE BESYLATE [Concomitant]
  8. LISINOPRIL [Concomitant]

REACTIONS (5)
  - GASTROINTESTINAL PERFORATION [None]
  - DRUG INEFFECTIVE [None]
  - CHRONIC OBSTRUCTIVE PULMONARY DISEASE [None]
  - COLECTOMY [None]
  - ABDOMINAL OPERATION [None]
